FAERS Safety Report 17014269 (Version 1)
Quarter: 2019Q4

REPORT INFORMATION
  Report Type: Report from Study
  Country: None (occurrence: NL)
  Receive Date: 20191111
  Receipt Date: 20191111
  Transmission Date: 20200122
  Serious: Yes (Hospitalization)
  Sender: FDA-Public Use
  Company Number: NL-ABBVIE-19K-114-2996938-00

PATIENT
  Sex: Female

DRUGS (2)
  1. OMEPRAZOLE. [Concomitant]
     Active Substance: OMEPRAZOLE
     Indication: PRODUCT USED FOR UNKNOWN INDICATION
  2. SYNAGIS [Suspect]
     Active Substance: PALIVIZUMAB
     Indication: HEART DISEASE CONGENITAL
     Route: 030
     Dates: start: 20191017, end: 20191017

REACTIONS (2)
  - Viral infection [Not Recovered/Not Resolved]
  - Bacterial infection [Not Recovered/Not Resolved]

NARRATIVE: CASE EVENT DATE: 2019
